FAERS Safety Report 9806900 (Version 2)
Quarter: 2014Q1

REPORT INFORMATION
  Report Type: Spontaneous
  Country: US (occurrence: US)
  Receive Date: 20140109
  Receipt Date: 20140320
  Transmission Date: 20141002
  Serious: No
  Sender: FDA-Public Use
  Company Number: US-009507513-1401USA002418

PATIENT
  Sex: Female

DRUGS (2)
  1. DULERA [Suspect]
     Indication: ASTHMA
     Dosage: 2 PUFFS/ TWICE A DAY
     Route: 055
     Dates: start: 201309
  2. VENTOLIN (ALBUTEROL) [Concomitant]

REACTIONS (2)
  - Sensation of foreign body [Not Recovered/Not Resolved]
  - Wrong technique in drug usage process [Unknown]
